FAERS Safety Report 25502640 (Version 1)
Quarter: 2025Q3

REPORT INFORMATION
  Report Type: Report from Study
  Country: CA (occurrence: CA)
  Receive Date: 20250702
  Receipt Date: 20250702
  Transmission Date: 20251021
  Serious: Yes (Other)
  Sender: SAMSUNG BIOEPIS
  Company Number: CA-SAMSUNG BIOEPIS-SB-2025-22547

PATIENT
  Age: 57 Year
  Sex: Female

DRUGS (1)
  1. BYOOVIZ [Suspect]
     Active Substance: RANIBIZUMAB-NUNA
     Indication: Choroidal neovascularisation
     Dates: start: 20250424

REACTIONS (3)
  - Swelling of eyelid [Recovering/Resolving]
  - Toxic anterior segment syndrome [Recovering/Resolving]
  - Endophthalmitis [Recovering/Resolving]

NARRATIVE: CASE EVENT DATE: 20250625
